FAERS Safety Report 20492223 (Version 1)
Quarter: 2022Q1

REPORT INFORMATION
  Report Type: Spontaneous
  Country: FR (occurrence: FR)
  Receive Date: 20220218
  Receipt Date: 20220218
  Transmission Date: 20220423
  Serious: Yes (Hospitalization, Disabling)
  Sender: FDA-Public Use
  Company Number: FR-009507513-2202FRA005533

PATIENT
  Sex: Male

DRUGS (1)
  1. JANUVIA [Suspect]
     Active Substance: SITAGLIPTIN PHOSPHATE
     Dosage: 100 MILLIGRAM
     Route: 048

REACTIONS (5)
  - Road traffic accident [Unknown]
  - Tendon rupture [Unknown]
  - Weight decreased [Unknown]
  - SARS-CoV-2 test negative [Unknown]
  - Weight increased [Unknown]

NARRATIVE: CASE EVENT DATE: 20160101
